FAERS Safety Report 25039123 (Version 2)
Quarter: 2025Q2

REPORT INFORMATION
  Report Type: Report from Study
  Country: PT (occurrence: PT)
  Receive Date: 20250305
  Receipt Date: 20250507
  Transmission Date: 20250716
  Serious: Yes (Other)
  Sender: BIOGEN
  Company Number: None

PATIENT
  Age: 62 Year
  Sex: Female

DRUGS (4)
  1. TECFIDERA [Suspect]
     Active Substance: DIMETHYL FUMARATE
     Indication: Multiple sclerosis
     Route: 050
     Dates: start: 201705
  2. ESCITALOPRAM [Concomitant]
     Active Substance: ESCITALOPRAM OXALATE
     Indication: Product used for unknown indication
     Route: 050
  3. Molinar [Concomitant]
     Indication: Product used for unknown indication
     Route: 050
  4. CHOLECALCIFEROL [Concomitant]
     Active Substance: CHOLECALCIFEROL
     Indication: Product used for unknown indication
     Route: 050

REACTIONS (2)
  - Leukopenia [Recovered/Resolved]
  - Flushing [Recovered/Resolved]
